FAERS Safety Report 18016157 (Version 1)
Quarter: 2020Q3

REPORT INFORMATION
  Report Type: Report from Study
  Country: None (occurrence: US)
  Receive Date: 20200714
  Receipt Date: 20200714
  Transmission Date: 20201103
  Serious: Yes (Hospitalization)
  Sender: FDA-Public Use
  Company Number: US-ABBVIE-20K-163-3461739-00

PATIENT
  Sex: Male

DRUGS (2)
  1. VENCLEXTA [Suspect]
     Active Substance: VENETOCLAX
     Indication: CHRONIC MYELOMONOCYTIC LEUKAEMIA
     Route: 048
  2. VENCLEXTA [Suspect]
     Active Substance: VENETOCLAX
     Route: 048
     Dates: start: 20200609

REACTIONS (6)
  - Pyrexia [Unknown]
  - Laboratory test abnormal [Unknown]
  - Depression [Unknown]
  - Infection [Unknown]
  - Fluid intake reduced [Unknown]
  - Off label use [Unknown]

NARRATIVE: CASE EVENT DATE: 2020
